FAERS Safety Report 4313067-6 (Version None)
Quarter: 2004Q1

REPORT INFORMATION
  Report Type: 
  Country: None (occurrence: None)
  Receive Date: 20040304
  Receipt Date: 20040223
  Transmission Date: 20041129
  Serious: Yes (Hospitalization, Other)
  Sender: FDA-Public Use
  Company Number: 2003120128

PATIENT
  Age: 69 Year
  Sex: Female

DRUGS (3)
  1. LIPITOR [Suspect]
     Indication: HYPERLIPIDAEMIA
     Dosage: 10 MG (DAILY), ORAL
     Route: 048
  2. CLOPIDOGREL BISULFATE [Suspect]
     Indication: ILL-DEFINED DISORDER
     Dosage: 75 MG (DAILY), ORAL
     Route: 048
     Dates: start: 20031119
  3. PRAVASTATIN [Concomitant]

REACTIONS (2)
  - ACUTE CORONARY SYNDROME [None]
  - DRUG INTERACTION [None]
